FAERS Safety Report 10282114 (Version 1)
Quarter: 2014Q3

REPORT INFORMATION
  Report Type: Spontaneous
  Country: US (occurrence: US)
  Receive Date: 20140707
  Receipt Date: 20140707
  Transmission Date: 20150326
  Serious: Yes (Other)
  Sender: FDA-Public Use
  Company Number: US-SANOFI-AVENTIS-2013SA094794

PATIENT
  Age: 60 Year
  Sex: Male

DRUGS (2)
  1. JEVTANA [Suspect]
     Active Substance: CABAZITAXEL
     Route: 065
  2. JEVTANA [Suspect]
     Active Substance: CABAZITAXEL
     Route: 065

REACTIONS (5)
  - Dyspnoea [Unknown]
  - Loss of consciousness [Unknown]
  - Hypersensitivity [Unknown]
  - Type I hypersensitivity [Unknown]
  - Hypotension [Unknown]
